FAERS Safety Report 9333151 (Version 2)
Quarter: 2013Q2

REPORT INFORMATION
  Report Type: Spontaneous
  Country: IN (occurrence: IN)
  Receive Date: 20130606
  Receipt Date: 20130612
  Transmission Date: 20140414
  Serious: Yes (Death)
  Sender: FDA-Public Use
  Company Number: IN-BAXTER-2013BAX020405

PATIENT
  Age: 32 Year
  Sex: Male

DRUGS (4)
  1. FLOSEAL [Suspect]
     Indication: HAEMOSTASIS
     Route: 065
     Dates: start: 20130523
  2. FLOSEAL [Suspect]
     Indication: TRAUMATIC LIVER INJURY
  3. SURGICEL NU-KNIT [Concomitant]
     Indication: SURGERY
     Route: 065
     Dates: start: 20130523
  4. SURGICEL NU-KNIT [Concomitant]
     Indication: TRAUMATIC LIVER INJURY

REACTIONS (2)
  - Hepatorenal syndrome [Fatal]
  - Renal failure [Fatal]
